FAERS Safety Report 22131543 (Version 1)
Quarter: 2023Q1

REPORT INFORMATION
  Report Type: Spontaneous
  Country: US (occurrence: US)
  Receive Date: 20230323
  Receipt Date: 20230323
  Transmission Date: 20230417
  Serious: No
  Sender: FDA-Public Use
  Company Number: US-ALLERGAN-2233327US

PATIENT
  Sex: Female
  Weight: 86.182 kg

DRUGS (1)
  1. PYLERA [Suspect]
     Active Substance: BISMUTH SUBCITRATE POTASSIUM\METRONIDAZOLE\TETRACYCLINE HYDROCHLORIDE
     Indication: Gastrointestinal bacterial infection
     Dosage: 3 CAPSULES
     Route: 048
     Dates: end: 20181229

REACTIONS (11)
  - Cough [Recovered/Resolved]
  - Angular cheilitis [Recovered/Resolved]
  - Dry skin [Recovered/Resolved]
  - Skin hypertrophy [Recovered/Resolved]
  - Skin exfoliation [Recovered/Resolved]
  - Pain in extremity [Recovered/Resolved]
  - Oral pain [Recovered/Resolved]
  - Decreased appetite [Recovered/Resolved]
  - Faeces discoloured [Recovered/Resolved]
  - Genital rash [Recovered/Resolved]
  - Anal rash [Recovered/Resolved]

NARRATIVE: CASE EVENT DATE: 20180101
